FAERS Safety Report 8392601 (Version 2)
Quarter: 2013Q3

REPORT INFORMATION
  Report Type: Spontaneous
  Country: CA (occurrence: CA)
  Receive Date: 20120206
  Receipt Date: 20130723
  Transmission Date: 20140515
  Serious: Yes (Life-Threatening, Hospitalization)
  Sender: FDA-Public Use
  Company Number: CA-ASTRAZENECA-2012SE06612

PATIENT
  Age: 15 Year
  Sex: Male
  Weight: 62.6 kg

DRUGS (9)
  1. PROPOFOL [Suspect]
     Indication: GENERAL ANAESTHESIA
     Route: 042
  2. PROPOFOL [Suspect]
     Indication: GENERAL ANAESTHESIA
     Route: 042
  3. ACETAMINOPHEN [Suspect]
     Indication: ANALGESIC THERAPY
     Dosage: 93 MG/KG OVER 3 DAYS
     Route: 048
  4. SEVOFLURANE [Suspect]
     Indication: GENERAL ANAESTHESIA
  5. THIOPENTAL [Concomitant]
  6. FENTANYL [Concomitant]
  7. REMIFENTANIL [Concomitant]
  8. HYDROMORPHONE [Concomitant]
     Indication: ANALGESIC THERAPY
     Route: 042
  9. KETAMINE [Concomitant]
     Indication: ANALGESIC THERAPY
     Route: 042

REACTIONS (3)
  - Acute hepatic failure [Recovered/Resolved]
  - Encephalopathy [Recovered/Resolved]
  - Renal failure acute [Recovered/Resolved]
